FAERS Safety Report 7429717-1 (Version None)
Quarter: 2011Q2

REPORT INFORMATION
  Report Type: 
  Country: None (occurrence: None)
  Receive Date: 20110421
  Receipt Date: 20110412
  Transmission Date: 20111010
  Serious: Yes (Other)
  Sender: FDA-Public Use
  Company Number: US-JNJFOC-20110406685

PATIENT
  Sex: Male
  Weight: 86.18 kg

DRUGS (5)
  1. FENTANYL-100 [Suspect]
     Indication: SPINAL COLUMN STENOSIS
     Dosage: NDC#0781-7241-55
     Route: 062
  2. FENTANYL-100 [Suspect]
     Dosage: NDC#0781-7241-55
     Route: 062
  3. SIMVASTATIN [Concomitant]
     Indication: BLOOD CHOLESTEROL
     Route: 048
  4. NORVASC [Concomitant]
     Indication: HYPERTENSION
     Route: 048
  5. PROZAC [Concomitant]
     Indication: AFFECTIVE DISORDER
     Route: 048

REACTIONS (6)
  - APPLICATION SITE PAIN [None]
  - INSOMNIA [None]
  - EAR DISCOMFORT [None]
  - HYPERTENSION [None]
  - WRONG TECHNIQUE IN DRUG USAGE PROCESS [None]
  - PRODUCT ADHESION ISSUE [None]
